FAERS Safety Report 7243105-2 (Version None)
Quarter: 2011Q1

REPORT INFORMATION
  Report Type: 
  Country: None (occurrence: None)
  Receive Date: 20110125
  Receipt Date: 20110120
  Transmission Date: 20110831
  Serious: Yes (Death, Hospitalization)
  Sender: FDA-Public Use
  Company Number: FR-SANOFI-AVENTIS-2011SA003870

PATIENT
  Age: 77 Year
  Sex: Male

DRUGS (9)
  1. OXALIPLATIN [Suspect]
     Route: 042
     Dates: start: 20090121, end: 20090121
  2. OXALIPLATIN [Suspect]
     Route: 042
     Dates: start: 20080806, end: 20080806
  3. CYMBALTA [Concomitant]
     Dates: start: 20100217, end: 20101209
  4. ACETAMINOPHEN AND TRAMADOL HCL [Concomitant]
     Dates: start: 20100217, end: 20101209
  5. TOPALGIC [Concomitant]
     Dates: start: 20100217, end: 20101209
  6. LYRICA [Concomitant]
     Dates: start: 20100331, end: 20101209
  7. TARCEVA [Suspect]
     Route: 048
     Dates: start: 20090204, end: 20101109
  8. GEMCITABINE [Suspect]
     Route: 042
     Dates: start: 20080804, end: 20080804
  9. GEMCITABINE [Suspect]
     Route: 042
     Dates: start: 20101109, end: 20101109

REACTIONS (2)
  - LUNG DISORDER [None]
  - DISEASE PROGRESSION [None]
